FAERS Safety Report 7522774 (Version 2)
Quarter: 2013Q4

REPORT INFORMATION
  Report Type: Spontaneous
  Country: US (occurrence: US)
  Receive Date: 20100803
  Receipt Date: 20131210
  Transmission Date: 20140711
  Serious: Yes (Hospitalization)
  Sender: FDA-Public Use
  Company Number: US-JNJFOC-20100702452

PATIENT
  Sex: Male
  Weight: 62.14 kg

DRUGS (5)
  1. PANCREASE [Suspect]
     Indication: CYSTIC FIBROSIS
     Route: 048
     Dates: start: 199111
  2. PANCREASE [Suspect]
     Indication: CYSTIC FIBROSIS
     Route: 048
     Dates: start: 199111
  3. HYDROCHLOROTHIAZIDE [Concomitant]
     Indication: PRODUCT USED FOR UNKNOWN INDICATION
     Route: 065
  4. VITAMIN K [Concomitant]
     Indication: PRODUCT USED FOR UNKNOWN INDICATION
     Route: 065
  5. CYPROHEPTADINE [Concomitant]
     Indication: PRODUCT USED FOR UNKNOWN INDICATION
     Route: 065

REACTIONS (9)
  - Adverse event [Unknown]
  - Weight decreased [Recovered/Resolved]
  - Drug ineffective [Recovered/Resolved]
  - Weight increased [Recovering/Resolving]
  - Product quality issue [Unknown]
  - Dyspepsia [Recovered/Resolved]
  - Abdominal pain upper [Not Recovered/Not Resolved]
  - Decreased appetite [Recovering/Resolving]
  - Diarrhoea [Not Recovered/Not Resolved]
